FAERS Safety Report 17155565 (Version 1)
Quarter: 2019Q4

REPORT INFORMATION
  Report Type: Spontaneous
  Country: US (occurrence: US)
  Receive Date: 20191215
  Receipt Date: 20191215
  Transmission Date: 20200122
  Serious: No
  Sender: FDA-Public Use
  Company Number: US-B.I. PHARMACEUTICALS,INC./RIDGEFIELD-2019-BI-119218

PATIENT

DRUGS (2)
  1. MOBIC [Suspect]
     Active Substance: MELOXICAM
     Indication: INFLAMMATION
  2. MOBIC [Suspect]
     Active Substance: MELOXICAM
     Indication: PAIN
     Route: 065

REACTIONS (1)
  - Drug ineffective [Unknown]
